FAERS Safety Report 18420331 (Version 2)
Quarter: 2020Q4

REPORT INFORMATION
  Report Type: Spontaneous
  Country: US (occurrence: US)
  Receive Date: 20201023
  Receipt Date: 20201027
  Transmission Date: 20210114
  Serious: Yes (Other)
  Sender: FDA-Public Use
  Company Number: US-AMARIN PHARMA, INC.-2020AMR000729

PATIENT
  Age: 70 Year
  Sex: Female
  Weight: 81.72 kg

DRUGS (1)
  1. VASCEPA [Suspect]
     Active Substance: ICOSAPENT ETHYL
     Indication: BLOOD CHOLESTEROL ABNORMAL
     Dates: start: 2019

REACTIONS (2)
  - Blood cholesterol abnormal [Unknown]
  - Shoulder operation [Unknown]

NARRATIVE: CASE EVENT DATE: 202007
